FAERS Safety Report 4364236-0 (Version None)
Quarter: 2004Q2

REPORT INFORMATION
  Report Type: 
  Country: None (occurrence: None)
  Receive Date: 20040519
  Receipt Date: 20040514
  Transmission Date: 20050107
  Serious: Yes (Other)
  Sender: FDA-Public Use
  Company Number: CC04-027

PATIENT
  Age: 77 Year
  Sex: Male

DRUGS (5)
  1. ALBUTEROL [Suspect]
     Indication: EMPHYSEMA
     Dosage: 2X90 MCG, 4X DAILY PRN
     Dates: start: 20040514
  2. CELEBREX [Concomitant]
  3. THEOPHYLLIA [Concomitant]
  4. ATROVENT [Concomitant]
  5. AEROBID [Concomitant]

REACTIONS (2)
  - DRUG INEFFECTIVE [None]
  - DYSPNOEA [None]
